FAERS Safety Report 12168598 (Version 3)
Quarter: 2016Q2

REPORT INFORMATION
  Report Type: Spontaneous
  Country: JP (occurrence: JP)
  Receive Date: 20160310
  Receipt Date: 20160414
  Transmission Date: 20160815
  Serious: Yes (Death, Hospitalization, Other)
  Sender: FDA-Public Use
  Company Number: JP-GILEAD-2016-0201428

PATIENT
  Age: 80 Year
  Sex: Female
  Weight: 55.6 kg

DRUGS (5)
  1. URSO [Concomitant]
     Active Substance: URSODIOL
     Dosage: UNK
     Route: 065
  2. GRIMAC [Concomitant]
     Dosage: UNK
     Route: 065
  3. AIMIX [Concomitant]
     Active Substance: AMLODIPINE BESYLATE\IRBESARTAN
     Dosage: UNK
     Route: 065
  4. HARVONI [Suspect]
     Active Substance: LEDIPASVIR\SOFOSBUVIR
     Indication: HEPATIC CIRRHOSIS
     Dosage: 1 DF, UNK
     Route: 048
     Dates: start: 20160108
  5. NEXIUM [Concomitant]
     Active Substance: ESOMEPRAZOLE MAGNESIUM
     Dosage: 200 MG, UNK
     Route: 065

REACTIONS (5)
  - Hypoaesthesia [Unknown]
  - Fractured ischium [Unknown]
  - Fall [Unknown]
  - Death [Fatal]
  - Pubis fracture [Unknown]

NARRATIVE: CASE EVENT DATE: 20160227
